FAERS Safety Report 4357373-8 (Version None)
Quarter: 2004Q2

REPORT INFORMATION
  Report Type: 
  Country: None (occurrence: None)
  Receive Date: 20040510
  Receipt Date: 20040422
  Transmission Date: 20050107
  Serious: Yes (Hospitalization)
  Sender: FDA-Public Use
  Company Number: DSA_24303_2004

PATIENT
  Age: 38 Year
  Sex: Male

DRUGS (2)
  1. LORAZEPAM [Suspect]
     Dates: start: 20040419, end: 20040419
  2. HOGGAR N [Suspect]
     Dates: start: 20040419, end: 20040419

REACTIONS (4)
  - DIARRHOEA [None]
  - FATIGUE [None]
  - INTENTIONAL OVERDOSE [None]
  - TACHYCARDIA [None]
